FAERS Safety Report 5709833-2 (Version None)
Quarter: 2008Q2

REPORT INFORMATION
  Report Type: 
  Country: None (occurrence: None)
  Receive Date: 20080418
  Receipt Date: 20070302
  Transmission Date: 20081010
  Serious: Yes (Hospitalization)
  Sender: FDA-Public Use
  Company Number: US-ASTRAZENECA-2007UW04060

PATIENT
  Age: 75 Year
  Sex: Female

DRUGS (1)
  1. TOPROL-XL [Suspect]
     Indication: HEART RATE INCREASED
     Route: 048

REACTIONS (3)
  - DRUG EFFECT DECREASED [None]
  - HEART RATE INCREASED [None]
  - POOR QUALITY DRUG ADMINISTERED [None]
